FAERS Safety Report 20884290 (Version 1)
Quarter: 2022Q2

REPORT INFORMATION
  Report Type: Spontaneous
  Country: SE (occurrence: SE)
  Receive Date: 20220527
  Receipt Date: 20220527
  Transmission Date: 20220721
  Serious: Yes (Other)
  Sender: FDA-Public Use
  Company Number: SE-ADVANZ PHARMA-202205002741

PATIENT

DRUGS (2)
  1. METHADONE [Suspect]
     Active Substance: METHADONE HYDROCHLORIDE
     Indication: Behaviour disorder
     Dosage: UNK
  2. METHADONE [Suspect]
     Active Substance: METHADONE HYDROCHLORIDE
     Indication: Mental disorder

REACTIONS (4)
  - Dry mouth [Unknown]
  - Infertility [Unknown]
  - Periodontitis [Unknown]
  - Libido decreased [Unknown]
